FAERS Safety Report 7030095-0 (Version None)
Quarter: 2010Q4

REPORT INFORMATION
  Report Type: 
  Country: None (occurrence: None)
  Receive Date: 20101001
  Receipt Date: 20100928
  Transmission Date: 20110411
  Serious: Yes (Other)
  Sender: FDA-Public Use
  Company Number: 2010SP051818

PATIENT
  Sex: Female

DRUGS (1)
  1. ORMIGREIN (ORMIGREIN 01755201) [Suspect]
     Indication: MIGRAINE
     Dosage: ;UNK;PO
     Route: 048
     Dates: start: 20000101, end: 20100101

REACTIONS (2)
  - DRUG DEPENDENCE [None]
  - THERAPY CESSATION [None]
